FAERS Safety Report 22265925 (Version 1)
Quarter: 2023Q2

REPORT INFORMATION
  Report Type: Spontaneous
  Country: US (occurrence: US)
  Receive Date: 20230428
  Receipt Date: 20230428
  Transmission Date: 20230721
  Serious: Yes (Other)
  Sender: FDA-Public Use
  Company Number: US-JNJFOC-20230439538

PATIENT
  Age: 73 Year
  Weight: 65.830 kg

DRUGS (2)
  1. OPSUMIT [Suspect]
     Active Substance: MACITENTAN
     Indication: Pulmonary arterial hypertension
     Route: 048
     Dates: start: 202101
  2. ELIQUIS [Concomitant]
     Active Substance: APIXABAN

REACTIONS (3)
  - Anaemia [Unknown]
  - COVID-19 [Unknown]
  - Transcatheter aortic valve implantation [Unknown]

NARRATIVE: CASE EVENT DATE: 20230101
